FAERS Safety Report 16543145 (Version 1)
Quarter: 2019Q3

REPORT INFORMATION
  Report Type: Report from Study
  Country: US (occurrence: US)
  Receive Date: 20190709
  Receipt Date: 20190709
  Transmission Date: 20191004
  Serious: Yes (Hospitalization)
  Sender: FDA-Public Use
  Company Number: US-ROCHE-2351312

PATIENT
  Age: 59 Year
  Sex: Female
  Weight: 70.2 kg

DRUGS (2)
  1. OBINUTUZUMAB. [Suspect]
     Active Substance: OBINUTUZUMAB
     Indication: B-CELL LYMPHOMA
     Dosage: 1000 MG ON DAY 1 OF EACH CYCLE X 12 CYCLES?LAST ADMINISTERED ON 20/MAR/2019
     Route: 042
     Dates: start: 20190320
  2. BENDAMUSTINE [Suspect]
     Active Substance: BENDAMUSTINE
     Indication: B-CELL LYMPHOMA
     Dosage: 90 MG/M2 ON DAYS 1 AND 2 OF EACH CYCLE X 6 CYCLES;?LAST DOSE OF BENDAMUSTINE ON 21/MAR/2019.
     Route: 042
     Dates: start: 20190320

REACTIONS (1)
  - Lymphocyte count decreased [Recovered/Resolved]

NARRATIVE: CASE EVENT DATE: 20190418
